FAERS Safety Report 14819603 (Version 1)
Quarter: 2018Q2

REPORT INFORMATION
  Report Type: Spontaneous
  Country: US (occurrence: US)
  Receive Date: 20180427
  Receipt Date: 20180427
  Transmission Date: 20180711
  Serious: Yes (Hospitalization, Other)
  Sender: FDA-Public Use
  Company Number: US-WEST-WARD PHARMACEUTICALS CORP.-US-H14001-18-03169

PATIENT
  Age: 32 Year
  Sex: Female

DRUGS (4)
  1. IDARUBICIN [Suspect]
     Active Substance: IDARUBICIN
     Indication: MYELODYSPLASTIC SYNDROME
     Route: 065
  2. CLADRIBINE. [Suspect]
     Active Substance: CLADRIBINE
     Indication: MYELODYSPLASTIC SYNDROME
     Route: 065
  3. CYTARABINE. [Suspect]
     Active Substance: CYTARABINE
     Indication: MYELODYSPLASTIC SYNDROME
     Route: 065
  4. ISAVUCONAZONIUM SULFATE [Suspect]
     Active Substance: ISAVUCONAZONIUM SULFATE
     Indication: ANTIFUNGAL PROPHYLAXIS
     Route: 048
     Dates: start: 20180315

REACTIONS (3)
  - Headache [Unknown]
  - Febrile neutropenia [Unknown]
  - Abdominal pain upper [Unknown]

NARRATIVE: CASE EVENT DATE: 20180322
